FAERS Safety Report 5850862-6 (Version None)
Quarter: 2008Q3

REPORT INFORMATION
  Report Type: 
  Country: None (occurrence: None)
  Receive Date: 20080819
  Receipt Date: 20080819
  Transmission Date: 20090109
  Serious: Yes (Death, Hospitalization)
  Sender: FDA-Public Use
  Company Number: None

PATIENT
  Sex: Male
  Weight: 66 kg

DRUGS (4)
  1. BEVACIZUMAB (RHUMAB VEGF) [Suspect]
     Dosage: 670 MG
     Dates: end: 20080715
  2. LEUCOVORIN CALCIUM [Suspect]
     Dosage: 1500 MG
     Dates: end: 20080715
  3. ELOXATIN [Suspect]
     Dosage: 300 MG
     Dates: end: 20080715
  4. FLUOROURACIL [Suspect]
     Dosage: 10150 MG
     Dates: end: 20080715

REACTIONS (4)
  - EXCORIATION [None]
  - JAW FRACTURE [None]
  - LACERATION [None]
  - ROAD TRAFFIC ACCIDENT [None]
